FAERS Safety Report 6261785-5 (Version None)
Quarter: 2009Q3

REPORT INFORMATION
  Report Type: 
  Country: None (occurrence: None)
  Receive Date: 20090709
  Receipt Date: 20090701
  Transmission Date: 20100115
  Serious: No
  Sender: FDA-Public Use
  Company Number: US-ASTRAZENECA-2009UW12593

PATIENT
  Age: 74 Year
  Sex: Female
  Weight: 70.3 kg

DRUGS (10)
  1. SYMBICORT [Suspect]
     Indication: CHRONIC OBSTRUCTIVE PULMONARY DISEASE
     Dosage: 160/4.5 UG 2 PUFFS
     Route: 055
     Dates: start: 20080902
  2. SYMBICORT [Suspect]
     Route: 055
  3. FISH OIL [Concomitant]
  4. FORTICOL [Concomitant]
  5. LASIX [Concomitant]
  6. NIASPAN [Concomitant]
  7. PRILOSEC [Concomitant]
     Route: 048
  8. SINGULAIR [Concomitant]
  9. SPIRIVA [Concomitant]
  10. ALBUTEROL [Concomitant]
     Dosage: 0.083 % EVERY 4 - 6 HOURS

REACTIONS (1)
  - CHRONIC OBSTRUCTIVE PULMONARY DISEASE [None]
